FAERS Safety Report 9140353 (Version 4)
Quarter: 2013Q3

REPORT INFORMATION
  Report Type: Spontaneous
  Country: BE (occurrence: BE)
  Receive Date: 20130305
  Receipt Date: 20130829
  Transmission Date: 20140515
  Serious: Yes (Other)
  Sender: FDA-Public Use
  Company Number: BE-BAYER-2013-026702

PATIENT
  Age: 46 Year
  Sex: Female

DRUGS (4)
  1. GADOVIST [Suspect]
     Indication: OVARIAN ENLARGEMENT
     Dosage: 8 ML, ONCE
     Dates: start: 20130301, end: 20130301
  2. GADOVIST [Suspect]
     Indication: CARBOHYDRATE ANTIGEN 125 INCREASED
  3. BUSCOPAN [Interacting]
     Indication: MUSCLE RELAXANT THERAPY
     Dosage: 1 AMPOULE OF 20 MG/1ML
     Dates: start: 20130301, end: 20130301
  4. BUSCOPAN [Interacting]
     Indication: PELVIC EXPLORATION

REACTIONS (4)
  - Visual impairment [Recovered/Resolved]
  - Mydriasis [Recovered/Resolved]
  - Vision blurred [Recovered/Resolved]
  - Potentiating drug interaction [None]
